FAERS Safety Report 4469736-0 (Version None)
Quarter: 2004Q3

REPORT INFORMATION
  Report Type: 
  Country: None (occurrence: None)
  Receive Date: 20040917
  Receipt Date: 20040305
  Transmission Date: 20050211
  Serious: Yes (Other)
  Sender: FDA-Public Use
  Company Number: PHEH2004US01694

PATIENT
  Age: 14 Year
  Sex: Male
  Weight: 61.9 kg

DRUGS (1)
  1. FEMARA [Suspect]
     Indication: DELAYED PUBERTY
     Dates: start: 20040101, end: 20040205

REACTIONS (1)
  - CEREBROVASCULAR ACCIDENT [None]
